FAERS Safety Report 11867234 (Version 4)
Quarter: 2016Q2

REPORT INFORMATION
  Report Type: Report from Study
  Country: JP (occurrence: JP)
  Receive Date: 20151224
  Receipt Date: 20160607
  Transmission Date: 20160815
  Serious: Yes (Hospitalization, Other)
  Sender: FDA-Public Use
  Company Number: JP-ALEXION-A201505149

PATIENT
  Age: 3 Month
  Sex: Male

DRUGS (3)
  1. STRENSIQ [Suspect]
     Active Substance: ASFOTASE ALFA
     Indication: HYPOPHOSPHATASIA
     Dosage: 2 MG/KG, TIW
     Route: 058
     Dates: start: 20150810
  2. HIRUDOID                           /00723701/ [Concomitant]
     Active Substance: PENTOSAN POLYSULFATE SODIUM
     Indication: PROPHYLAXIS
     Dosage: UNK, TID
     Route: 062
     Dates: start: 20151023, end: 20151216
  3. PROPETO [Concomitant]
     Indication: PROPHYLAXIS
     Dosage: UNK, TID
     Route: 062
     Dates: start: 20151013

REACTIONS (3)
  - Urinary tract infection [Recovered/Resolved]
  - Ureteric stenosis [Not Recovered/Not Resolved]
  - Impetigo [Recovered/Resolved]

NARRATIVE: CASE EVENT DATE: 201511
